FAERS Safety Report 24324868 (Version 3)
Quarter: 2025Q2

REPORT INFORMATION
  Report Type: Spontaneous
  Country: US (occurrence: US)
  Receive Date: 20240916
  Receipt Date: 20250527
  Transmission Date: 20250717
  Serious: Yes (Other)
  Sender: MYLAN
  Company Number: US-MYLANLABS-2024M1082792

PATIENT
  Age: 31 Year
  Sex: Male
  Weight: 76.2 kg

DRUGS (5)
  1. GABAPENTIN [Suspect]
     Active Substance: GABAPENTIN
     Indication: Pain
     Dosage: 300 MILLIGRAM, TID (THREE EACH DAY)
     Dates: start: 20240613
  2. GABAPENTIN [Suspect]
     Active Substance: GABAPENTIN
     Indication: Sciatica
     Dosage: 300 MILLIGRAM, BID (FOR 3 DAYS)
  3. GABAPENTIN [Suspect]
     Active Substance: GABAPENTIN
     Indication: Back pain
     Dosage: 300 MILLIGRAM, QD (PER DAY)
     Dates: end: 20240720
  4. GABAPENTIN [Suspect]
     Active Substance: GABAPENTIN
     Dosage: 300 MILLIGRAM, BID (2X DAILY)
     Dates: start: 20240720, end: 202501
  5. IBUPROFEN [Concomitant]
     Active Substance: IBUPROFEN

REACTIONS (34)
  - Weight decreased [Unknown]
  - Heart rate increased [Recovering/Resolving]
  - Disturbance in attention [Recovering/Resolving]
  - Chills [Recovering/Resolving]
  - Akathisia [Recovering/Resolving]
  - Skin burning sensation [Recovering/Resolving]
  - Postural orthostatic tachycardia syndrome [Unknown]
  - Autonomic nervous system imbalance [Unknown]
  - Pulse abnormal [Unknown]
  - Tremor [Unknown]
  - Abdominal distension [Unknown]
  - Paraesthesia [Unknown]
  - Peripheral venous disease [Unknown]
  - Temperature intolerance [Unknown]
  - Tachyphrenia [Unknown]
  - Toothache [Unknown]
  - Illness [Unknown]
  - Oropharyngeal pain [Unknown]
  - Gingival pain [Unknown]
  - Exercise tolerance decreased [Unknown]
  - Muscle twitching [Unknown]
  - Flushing [Unknown]
  - Tachycardia [Unknown]
  - Palpitations [Recovering/Resolving]
  - Tinnitus [Recovering/Resolving]
  - Decreased appetite [Recovering/Resolving]
  - Insomnia [Recovering/Resolving]
  - Back pain [Unknown]
  - Dizziness [Recovering/Resolving]
  - Constipation [Unknown]
  - Diarrhoea [Unknown]
  - Abdominal pain upper [Unknown]
  - Chest pain [Unknown]
  - Off label use [Unknown]

NARRATIVE: CASE EVENT DATE: 20240613
